FAERS Safety Report 10209977 (Version 1)
Quarter: 2014Q2

REPORT INFORMATION
  Report Type: Spontaneous
  Country: FR (occurrence: FR)
  Receive Date: 20140602
  Receipt Date: 20140602
  Transmission Date: 20141212
  Serious: Yes (Disabling)
  Sender: FDA-Public Use
  Company Number: FR-TEVA-483578ISR

PATIENT
  Age: 54 Year
  Sex: Female

DRUGS (1)
  1. TRAMADOL TEVA [Suspect]
     Indication: FASCIITIS
     Dosage: 100 MILLIGRAM DAILY;
     Route: 048
     Dates: start: 20130709, end: 20130709

REACTIONS (8)
  - Drug intolerance [Recovering/Resolving]
  - Pruritus [Recovered/Resolved]
  - Hypoaesthesia [Recovered/Resolved]
  - Nausea [Recovered/Resolved]
  - Vomiting [Recovered/Resolved]
  - Coordination abnormal [Recovered/Resolved]
  - Chest pain [Not Recovered/Not Resolved]
  - Memory impairment [Recovered/Resolved]
